FAERS Safety Report 19512330 (Version 1)
Quarter: 2021Q3

REPORT INFORMATION
  Report Type: Spontaneous
  Country: IE (occurrence: IE)
  Receive Date: 20210709
  Receipt Date: 20210709
  Transmission Date: 20211014
  Serious: Yes (Hospitalization, Other)
  Sender: FDA-Public Use
  Company Number: IE-MYLANLABS-2021M1040420

PATIENT
  Age: 16 Year
  Sex: Female
  Weight: 68 kg

DRUGS (9)
  1. GLIBENCLAMIDE [Suspect]
     Active Substance: GLYBURIDE
     Dosage: 0.44 MILLIGRAM/KILOGRAM, QD
     Route: 048
     Dates: start: 2015
  2. GLIBENCLAMIDE [Suspect]
     Active Substance: GLYBURIDE
     Dosage: 15 MILLIGRAM
     Route: 048
  3. NOVORAPID [Concomitant]
     Active Substance: INSULIN ASPART
     Indication: TYPE 1 DIABETES MELLITUS
     Dosage: 2?3 UNITS FOR BREAKFAST AND 9?10 UNITS BEFORE DINNER
     Route: 065
  4. GLIBENCLAMIDE [Suspect]
     Active Substance: GLYBURIDE
     Dosage: 20 MILLIGRAM 0.57 MG/KG/DAY
     Route: 048
     Dates: start: 201909
  5. INSULIN DETEMIR [Concomitant]
     Active Substance: INSULIN DETEMIR
     Indication: TYPE 1 DIABETES MELLITUS
     Dosage: FOUR UNITS
     Route: 065
  6. GLIBENCLAMIDE [Suspect]
     Active Substance: GLYBURIDE
     Dosage: 0.5 MILLIGRAM/KILOGRAM, QD
     Route: 048
     Dates: start: 2007
  7. GLIBENCLAMIDE [Suspect]
     Active Substance: GLYBURIDE
     Dosage: 1 MILLIGRAM/KILOGRAM, QD
     Route: 048
     Dates: start: 2007
  8. GLIBENCLAMIDE [Suspect]
     Active Substance: GLYBURIDE
     Indication: TYPE 1 DIABETES MELLITUS
     Route: 048
     Dates: start: 2007
  9. NOVORAPID [Concomitant]
     Active Substance: INSULIN ASPART
     Dosage: TAKE SMALL DOSES PREMEALS
     Route: 065

REACTIONS (4)
  - Hypoglycaemia [Recovering/Resolving]
  - Treatment failure [Unknown]
  - Weight decreased [Recovering/Resolving]
  - Contraindicated product administered [Unknown]

NARRATIVE: CASE EVENT DATE: 2007
